FAERS Safety Report 13437378 (Version 2)
Quarter: 2017Q2

REPORT INFORMATION
  Report Type: Spontaneous
  Country: NL (occurrence: NL)
  Receive Date: 20170413
  Receipt Date: 20170420
  Transmission Date: 20170830
  Serious: Yes (Other)
  Sender: FDA-Public Use
  Company Number: NL-CELLTRION INC.-2017NL004621

PATIENT

DRUGS (4)
  1. PREDNISONE                         /00044702/ [Concomitant]
     Active Substance: PREDNISONE
  2. INFLIXIMAB HOSPIRA [Suspect]
     Active Substance: INFLIXIMAB
     Indication: RHEUMATOID ARTHRITIS
     Dosage: 3 MG/KG, (3 DOSES)
     Route: 042
  3. DICLOFENAC                         /00372302/ [Concomitant]
     Active Substance: DICLOFENAC
  4. OMEPRAZOLE                         /00661202/ [Concomitant]

REACTIONS (1)
  - Toxic optic neuropathy [Not Recovered/Not Resolved]
